FAERS Safety Report 25083889 (Version 1)
Quarter: 2025Q1

REPORT INFORMATION
  Report Type: Report from Study
  Country: US (occurrence: US)
  Receive Date: 20250317
  Receipt Date: 20250317
  Transmission Date: 20250408
  Serious: Yes (Hospitalization, Other)
  Sender: BAYER HEALTHCARE PHARMACEUTICALS INC.
  Company Number: US-BAYER-2025A031716

PATIENT
  Age: 44 Year
  Sex: Female
  Weight: 52.381 kg

DRUGS (20)
  1. ADEMPAS [Suspect]
     Active Substance: RIOCIGUAT
     Indication: Pulmonary arterial hypertension
     Route: 048
     Dates: start: 20201022
  2. ADEMPAS [Suspect]
     Active Substance: RIOCIGUAT
     Indication: Pulmonary arterial hypertension
     Dosage: 2 MG, TID
     Route: 048
  3. STERILE WATER [Concomitant]
     Active Substance: WATER
  4. LEVOTHYROXINE SODIUM [Concomitant]
     Active Substance: LEVOTHYROXINE SODIUM
  5. ZYRTEC [Concomitant]
     Active Substance: CETIRIZINE HYDROCHLORIDE
  6. FUROSEMIDE [Concomitant]
     Active Substance: FUROSEMIDE
  7. POTASSIUM CHLORIDE [Concomitant]
     Active Substance: POTASSIUM CHLORIDE
  8. TYLENOL EXTRA STRENGTH [Concomitant]
     Active Substance: ACETAMINOPHEN
  9. NPLATE [Concomitant]
     Active Substance: ROMIPLOSTIM
  10. SODIUM CHLORIDE [Concomitant]
     Active Substance: SODIUM CHLORIDE
  11. PANTOPRAZOLE SODIUM [Concomitant]
     Active Substance: PANTOPRAZOLE SODIUM
  12. VELETRI [Concomitant]
     Active Substance: EPOPROSTENOL
  13. IRON [Concomitant]
     Active Substance: IRON
  14. HYDROXYCHLOROQUINE SULFATE [Concomitant]
     Active Substance: HYDROXYCHLOROQUINE SULFATE
  15. LETAIRIS [Concomitant]
     Active Substance: AMBRISENTAN
  16. SPIRONOLACTONE [Concomitant]
     Active Substance: SPIRONOLACTONE
  17. PREDNISONE [Concomitant]
     Active Substance: PREDNISONE
  18. OXYGEN [Concomitant]
     Active Substance: OXYGEN
  19. AMBRISENTAN [Concomitant]
     Active Substance: AMBRISENTAN
  20. VITAMIN B12 [Concomitant]
     Active Substance: CYANOCOBALAMIN

REACTIONS (10)
  - Haemorrhage [None]
  - Asthenia [None]
  - Fatigue [None]
  - Abdominal pain upper [None]
  - Haematochezia [None]
  - Epistaxis [None]
  - Haematemesis [None]
  - Gait inability [None]
  - Sjogren^s syndrome [None]
  - Loss of consciousness [None]

NARRATIVE: CASE EVENT DATE: 20241101
